FAERS Safety Report 9681754 (Version 1)
Quarter: 2013Q4

REPORT INFORMATION
  Report Type: Spontaneous
  Country: AT (occurrence: AT)
  Receive Date: 20131111
  Receipt Date: 20131111
  Transmission Date: 20140711
  Serious: Yes (Hospitalization)
  Sender: FDA-Public Use
  Company Number: AT-GLAXOSMITHKLINE-B0941274A

PATIENT
  Age: 34 Year
  Sex: Female

DRUGS (6)
  1. CUROCEF [Suspect]
     Indication: PREOPERATIVE CARE
     Route: 042
     Dates: start: 20131008, end: 20131008
  2. VOLTAREN [Suspect]
     Indication: PAIN
     Route: 048
     Dates: start: 20131008, end: 20131011
  3. NOVALGIN [Suspect]
     Indication: PAIN
     Route: 048
     Dates: start: 20131008, end: 20131013
  4. NOVALGIN [Suspect]
     Indication: PAIN
     Route: 042
     Dates: start: 20131008, end: 20131013
  5. PERFALGAN [Suspect]
     Indication: PAIN
     Route: 065
     Dates: start: 20131010, end: 20131010
  6. PASPERTIN [Suspect]
     Indication: NAUSEA
     Route: 048
     Dates: start: 20131011, end: 20131012

REACTIONS (2)
  - Pruritus [Recovered/Resolved]
  - Rash generalised [Recovered/Resolved]
